FAERS Safety Report 4847446-5 (Version None)
Quarter: 2005Q4

REPORT INFORMATION
  Report Type: 
  Country: None (occurrence: None)
  Receive Date: 20051207
  Receipt Date: 20051125
  Transmission Date: 20060501
  Serious: Yes (Hospitalization)
  Sender: FDA-Public Use
  Company Number: FR-BRISTOL-MYERS SQUIBB COMPANY-13193750

PATIENT
  Age: 53 Year
  Sex: Male

DRUGS (1)
  1. REYATAZ [Suspect]
     Route: 048
     Dates: start: 20050601

REACTIONS (2)
  - NEPHROLITHIASIS [None]
  - RENAL COLIC [None]
